FAERS Safety Report 15122095 (Version 1)
Quarter: 2018Q3

REPORT INFORMATION
  Report Type: Spontaneous
  Country: US (occurrence: US)
  Receive Date: 20180709
  Receipt Date: 20180709
  Transmission Date: 20181010
  Serious: Yes (Hospitalization, Other)
  Sender: FDA-Public Use
  Company Number: US-STRIDES ARCOLAB LIMITED-2018SP005632

PATIENT

DRUGS (12)
  1. PREDNISOLONE. [Interacting]
     Active Substance: PREDNISOLONE
     Indication: GRAFT VERSUS HOST DISEASE IN GASTROINTESTINAL TRACT
     Dosage: UNK
     Route: 065
  2. RIFABUTIN. [Interacting]
     Active Substance: RIFABUTIN
     Indication: TUBERCULOSIS
     Dosage: 300 MG, DAILY
     Route: 048
  3. CYCLOPHOSPHAMIDE. [Interacting]
     Active Substance: CYCLOPHOSPHAMIDE
     Indication: CORD BLOOD TRANSPLANT THERAPY
     Dosage: UNK
     Route: 065
  4. MYCOPHENOLATE MOFETIL. [Suspect]
     Active Substance: MYCOPHENOLATE MOFETIL
     Indication: PROPHYLAXIS AGAINST GRAFT VERSUS HOST DISEASE
     Dosage: UNK
     Route: 065
  5. THIOTEPA. [Interacting]
     Active Substance: THIOTEPA
     Indication: CORD BLOOD TRANSPLANT THERAPY
     Dosage: UNK
     Route: 065
  6. RIFABUTIN. [Interacting]
     Active Substance: RIFABUTIN
     Dosage: 450 MG, UNK
     Route: 065
  7. CYCLOSPORIN A [Interacting]
     Active Substance: CYCLOSPORINE
     Indication: PROPHYLAXIS AGAINST GRAFT VERSUS HOST DISEASE
     Dosage: UNK
     Route: 065
  8. ISONIAZID. [Interacting]
     Active Substance: ISONIAZID
     Dosage: 300 MG, UNK
     Route: 065
  9. ETHAMBUTOL [Interacting]
     Active Substance: ETHAMBUTOL HYDROCHLORIDE
     Indication: TUBERCULOSIS
     Dosage: 1200 MG, DAILY
     Route: 048
  10. FLUDARABINE [Interacting]
     Active Substance: FLUDARABINE PHOSPHATE
     Indication: CORD BLOOD TRANSPLANT THERAPY
     Dosage: UNK
     Route: 065
  11. ISONIAZID. [Interacting]
     Active Substance: ISONIAZID
     Indication: TUBERCULOSIS
     Dosage: 300 MG, DAILY
     Route: 048
  12. PYRAZINAMIDE. [Interacting]
     Active Substance: PYRAZINAMIDE
     Indication: TUBERCULOSIS
     Dosage: 1500 MG, DAILY
     Route: 048

REACTIONS (14)
  - Back pain [Recovered/Resolved]
  - Paradoxical drug reaction [Recovered/Resolved]
  - Disseminated tuberculosis [Recovered/Resolved]
  - Vomiting [Recovered/Resolved]
  - Lymphopenia [Recovered/Resolved]
  - Graft versus host disease in gastrointestinal tract [Unknown]
  - Off label use [Unknown]
  - Dyspnoea [Recovered/Resolved]
  - Nausea [Recovered/Resolved]
  - Pain in extremity [Recovered/Resolved]
  - Drug interaction [Unknown]
  - Immune reconstitution inflammatory syndrome [Recovered/Resolved]
  - Pyrexia [Recovered/Resolved]
  - Tuberculosis [Recovered/Resolved]
